FAERS Safety Report 24653704 (Version 2)
Quarter: 2024Q4

REPORT INFORMATION
  Report Type: Report from Study
  Country: NL (occurrence: NL)
  Receive Date: 20241122
  Receipt Date: 20241129
  Transmission Date: 20250115
  Serious: Yes (Other)
  Sender: AZURITY PHARMACEUTICALS
  Company Number: NL-AZURITY PHARMACEUTICALS, INC.-AZR202411-001125

PATIENT
  Age: 74 Year
  Sex: Male

DRUGS (9)
  1. TRIPTORELIN [Suspect]
     Active Substance: TRIPTORELIN
     Indication: Prostate cancer
     Dosage: 11.25 MILLIGRAMS, IN 3 MONTH
     Route: 030
     Dates: start: 20230831
  2. TRIPTORELIN [Suspect]
     Active Substance: TRIPTORELIN
     Dosage: 11.25 MILLIGRAMS, IN 3 MONTH
     Route: 030
     Dates: start: 20240808
  3. TRIPTORELIN [Suspect]
     Active Substance: TRIPTORELIN
     Dosage: 11.25 MILLIGRAMS, IN 3 MONTH
     Route: 030
     Dates: start: 20241107
  4. ABIRATERONE [Concomitant]
     Active Substance: ABIRATERONE\ABIRATERONE ACETATE
     Indication: Product used for unknown indication
     Dosage: 500 MG X 2 TAL.
     Route: 065
  5. HYDROCHLOROTHIAZIDE [Concomitant]
     Active Substance: HYDROCHLOROTHIAZIDE
     Indication: Product used for unknown indication
     Dosage: 12.5 MILLIGRAM, 1 DAILY DOSE
     Route: 065
  6. PREDNISONE [Concomitant]
     Active Substance: PREDNISONE
     Indication: Product used for unknown indication
     Dosage: 5 MILLIGRAM, 2 DAILY DOSE
     Route: 065
  7. CALCIUM [Concomitant]
     Active Substance: CALCIUM
     Indication: Product used for unknown indication
     Dosage: 500/800 MG 1XDD
     Route: 065
  8. ATORVASTATIN [Concomitant]
     Active Substance: ATORVASTATIN
     Indication: Product used for unknown indication
     Dosage: 40 MILLIGRAM, 1 X DD
     Route: 065
  9. IMODIUM [Concomitant]
     Active Substance: LOPERAMIDE HYDROCHLORIDE
     Indication: Product used for unknown indication
     Dosage: 2 MG X ZN
     Route: 065

REACTIONS (2)
  - Malignant neoplasm progression [Unknown]
  - Tumour pain [Not Recovered/Not Resolved]

NARRATIVE: CASE EVENT DATE: 20241106
